FAERS Safety Report 13932698 (Version 1)
Quarter: 2017Q3

REPORT INFORMATION
  Report Type: Spontaneous
  Country: US (occurrence: US)
  Receive Date: 20170904
  Receipt Date: 20170904
  Transmission Date: 20171127
  Serious: No
  Sender: FDA-Public Use
  Company Number: US-WEST-WARD PHARMACEUTICALS CORP.-US-H14001-17-02913

PATIENT
  Sex: Female

DRUGS (2)
  1. XELJANZ XR [Suspect]
     Active Substance: TOFACITINIB CITRATE
     Indication: PRODUCT USED FOR UNKNOWN INDICATION
     Route: 048
  2. METHOTREXATE. [Suspect]
     Active Substance: METHOTREXATE
     Indication: PRODUCT USED FOR UNKNOWN INDICATION
     Route: 048

REACTIONS (8)
  - Alopecia [Unknown]
  - Abdominal discomfort [Unknown]
  - Arthralgia [Unknown]
  - Joint stiffness [Recovering/Resolving]
  - Cushingoid [Unknown]
  - Anaemia [Unknown]
  - Osteopenia [Unknown]
  - Joint range of motion decreased [Unknown]
